FAERS Safety Report 9272171 (Version 2)
Quarter: 2013Q4

REPORT INFORMATION
  Report Type: Spontaneous
  Country: US (occurrence: US)
  Receive Date: 20130506
  Receipt Date: 20131127
  Transmission Date: 20140711
  Serious: Yes (Other)
  Sender: FDA-Public Use
  Company Number: CHPA2013US007414

PATIENT
  Age: 89 Year
  Sex: Female

DRUGS (10)
  1. MAALOX ANTACID/ANTIGAS MAX QDTABS ASST [Suspect]
     Indication: ULCER HAEMORRHAGE
     Dosage: 1 DF, QD
     Route: 048
  2. MAALOX ANTACID/ANTIGAS MAX QDTABS ASST [Suspect]
     Indication: OFF LABEL USE
     Dosage: 1 DF, QHS
     Route: 048
  3. MAALOX ANTACID/ANTIGAS MAX QDTABS ASST [Suspect]
     Dosage: 1 DF, QH
     Route: 048
  4. MAALOX ANTACID/ANTIGAS MAX QDTABS LEMON [Suspect]
     Indication: ULCER HAEMORRHAGE
     Dosage: 1 DF, QD
     Route: 048
  5. MAALOX ANTACID/ANTIGAS MAX QDTABS LEMON [Suspect]
     Indication: OFF LABEL USE
     Dosage: 1 DF, QH
     Route: 048
  6. MAALOX ANTACID BARRIER [Suspect]
     Indication: ULCER HAEMORRHAGE
     Dosage: 1 DF, QHS
     Route: 048
  7. MAALOX ANTACID BARRIER [Suspect]
     Indication: OFF LABEL USE
     Dosage: 1 DF, QH
     Route: 048
  8. MAALOX UNKNOWN [Suspect]
     Indication: ULCER HAEMORRHAGE
     Dosage: 3 TSP, QHS
     Route: 048
  9. MAALOX UNKNOWN [Suspect]
     Indication: OFF LABEL USE
     Dosage: UNK, QH
     Route: 048
  10. AMPHOJEL [Concomitant]
     Indication: ULCER HAEMORRHAGE
     Dosage: 3 TSP, QHS

REACTIONS (9)
  - Basedow^s disease [Not Recovered/Not Resolved]
  - Ulcer [Recovered/Resolved]
  - Visual impairment [Recovering/Resolving]
  - Thyroid disorder [Not Recovered/Not Resolved]
  - Renal disorder [Recovered/Resolved]
  - Eye swelling [Unknown]
  - Swelling face [Unknown]
  - Swelling [Unknown]
  - Faeces discoloured [Unknown]
